FAERS Safety Report 25374004 (Version 1)
Quarter: 2025Q2

REPORT INFORMATION
  Report Type: Report from Study
  Country: US (occurrence: US)
  Receive Date: 20250529
  Receipt Date: 20250529
  Transmission Date: 20250717
  Serious: Yes (Other)
  Sender: EMD SERONO INC
  Company Number: US-Merck Healthcare KGaA-2025026540

PATIENT
  Sex: Female
  Weight: 74 kg

DRUGS (2)
  1. MAVENCLAD [Suspect]
     Active Substance: CLADRIBINE
     Indication: Multiple sclerosis
  2. AMPYRA [Concomitant]
     Active Substance: DALFAMPRIDINE
     Indication: Gait disturbance

REACTIONS (5)
  - Cauda equina syndrome [Unknown]
  - Glaucoma [Unknown]
  - Fatigue [Unknown]
  - Anxiety disorder [Unknown]
  - Blood pressure systolic increased [Unknown]
